FAERS Safety Report 9437596 (Version 1)
Quarter: 2013Q3

REPORT INFORMATION
  Report Type: Spontaneous
  Country: US (occurrence: US)
  Receive Date: 20130802
  Receipt Date: 20130802
  Transmission Date: 20140515
  Serious: No
  Sender: FDA-Public Use
  Company Number: US-TEVA-422962USA

PATIENT
  Age: 52 Year
  Sex: Female
  Weight: 60.84 kg

DRUGS (3)
  1. PROAIR HFA [Suspect]
     Indication: ASTHMA
     Route: 055
  2. NORVASC [Concomitant]
     Indication: HYPERTENSION
  3. CALCIUM [Concomitant]

REACTIONS (1)
  - Blood calcium decreased [Unknown]
